FAERS Safety Report 5940107-0 (Version None)
Quarter: 2008Q4

REPORT INFORMATION
  Report Type: 
  Country: None (occurrence: None)
  Receive Date: 20081104
  Receipt Date: 20080205
  Transmission Date: 20090506
  Serious: No
  Sender: FDA-Public Use
  Company Number: US-BAYER-200713711BCC

PATIENT
  Age: 34 Year
  Sex: Female
  Weight: 66 kg

DRUGS (1)
  1. MIDOL EXTENDED RELIEF CAPLET [Suspect]
     Indication: DYSMENORRHOEA
     Dosage: TOTAL DAILY DOSE: 220 MG  UNIT DOSE: 220 MG
     Route: 048
     Dates: start: 20071109

REACTIONS (9)
  - ANGIOEDEMA [None]
  - DRUG HYPERSENSITIVITY [None]
  - ERYTHEMA [None]
  - EXCORIATION [None]
  - LIP SWELLING [None]
  - PRURITUS GENERALISED [None]
  - RASH [None]
  - THERMAL BURN [None]
  - URTICARIA [None]
